FAERS Safety Report 9907636 (Version 2)
Quarter: 2014Q2

REPORT INFORMATION
  Report Type: Report from Study
  Country: US (occurrence: US)
  Receive Date: 20140219
  Receipt Date: 20140508
  Transmission Date: 20141212
  Serious: Yes (Hospitalization)
  Sender: FDA-Public Use
  Company Number: US-BIOGENIDEC-2014BI013749

PATIENT
  Age: 25 Year
  Sex: Male
  Weight: 72 kg

DRUGS (8)
  1. TYSABRI [Suspect]
     Indication: CROHN^S DISEASE
     Route: 042
     Dates: start: 20080813
  2. CALCIUM CITRATE [Concomitant]
     Route: 048
  3. TRIDESILON [Concomitant]
     Route: 061
  4. ANUSOL HC [Concomitant]
     Route: 054
     Dates: start: 20120925
  5. FERREX 150 [Concomitant]
     Dates: start: 20130916
  6. OSMOPREP [Concomitant]
     Route: 048
     Dates: start: 20130916
  7. AUGMENTIN [Concomitant]
  8. ANALPRAM [Concomitant]

REACTIONS (1)
  - Perirectal abscess [Recovered/Resolved]
